FAERS Safety Report 8348418-9 (Version None)
Quarter: 2012Q2

REPORT INFORMATION
  Report Type: 
  Country: None (occurrence: None)
  Receive Date: 20120509
  Receipt Date: 20120425
  Transmission Date: 20120825
  Serious: Yes (Other)
  Sender: FDA-Public Use
  Company Number: CHPA2012US009917

PATIENT
  Sex: Male

DRUGS (3)
  1. EXCEDRIN EXTRA STRENGTH TABLETS [Suspect]
     Indication: PAIN
     Dosage: 1 DF, UNK
     Route: 048
     Dates: end: 20020101
  2. EXCEDRIN EXTRA STRENGTH TABLETS [Suspect]
     Dosage: 2 DF AT A TIME FOR A TOTAL OF 4-6 QD
     Route: 048
     Dates: start: 20020101
  3. ALLEGRA [Concomitant]
     Indication: HYPERSENSITIVITY
     Dosage: UNK

REACTIONS (9)
  - SJOGREN'S SYNDROME [None]
  - UNDERDOSE [None]
  - OFF LABEL USE [None]
  - NEUROPATHY PERIPHERAL [None]
  - ARTERIAL OCCLUSIVE DISEASE [None]
  - INCORRECT DRUG ADMINISTRATION DURATION [None]
  - DIABETES MELLITUS [None]
  - HEADACHE [None]
  - SLEEP APNOEA SYNDROME [None]
